FAERS Safety Report 14204609 (Version 1)
Quarter: 2017Q4

REPORT INFORMATION
  Report Type: Spontaneous
  Country: US (occurrence: None)
  Receive Date: 20171118
  Receipt Date: 20171118
  Transmission Date: 20180321
  Serious: Yes (Hospitalization)
  Sender: FDA-Public Use
  Company Number: None

PATIENT
  Age: 67 Year
  Sex: Male

DRUGS (1)
  1. MULTAQ [Suspect]
     Active Substance: DRONEDARONE
     Dates: start: 201310, end: 20140407

REACTIONS (10)
  - Fatigue [None]
  - Pancreatitis acute [None]
  - Hepatotoxicity [None]
  - General physical health deterioration [None]
  - Renal failure [None]
  - Drug-induced liver injury [None]
  - Hepatitis acute [None]
  - Jaundice [None]
  - Haemodialysis [None]
  - Cardiac arrest [None]

NARRATIVE: CASE EVENT DATE: 20140407
